FAERS Safety Report 21452280 (Version 1)
Quarter: 2022Q4

REPORT INFORMATION
  Report Type: Report from Study
  Country: US (occurrence: US)
  Receive Date: 20221013
  Receipt Date: 20221013
  Transmission Date: 20230113
  Serious: Yes (Other)
  Sender: FDA-Public Use
  Company Number: US-BRISTOL-MYERS SQUIBB COMPANY-2022-118631

PATIENT
  Age: 67 Year
  Sex: Female
  Weight: 47.2 kg

DRUGS (1)
  1. ZEPOSIA [Suspect]
     Active Substance: OZANIMOD HYDROCHLORIDE
     Indication: Colitis
     Route: 048
     Dates: start: 20220105

REACTIONS (3)
  - Coeliac disease [Unknown]
  - Fatigue [Unknown]
  - Depressed mood [Unknown]
